FAERS Safety Report 22043573 (Version 1)
Quarter: 2023Q1

REPORT INFORMATION
  Report Type: Spontaneous
  Country: FR (occurrence: FR)
  Receive Date: 20230228
  Receipt Date: 20230228
  Transmission Date: 20230418
  Serious: Yes (Hospitalization, Other)
  Sender: FDA-Public Use
  Company Number: FR-STERISCIENCE B.V.-2023-ST-000880

PATIENT
  Age: 21 Day
  Sex: Female

DRUGS (4)
  1. VANCOMYCIN [Suspect]
     Active Substance: VANCOMYCIN
     Indication: Pneumatosis intestinalis
     Dosage: UNK
  2. CEFOTAXIME [Suspect]
     Active Substance: CEFOTAXIME SODIUM
     Indication: Pneumatosis intestinalis
     Dosage: UNK
  3. AMIKACIN [Suspect]
     Active Substance: AMIKACIN
     Indication: Pneumatosis intestinalis
     Dosage: UNK
  4. METRONIDAZOLE [Suspect]
     Active Substance: METRONIDAZOLE
     Indication: Pneumatosis intestinalis
     Dosage: UNK

REACTIONS (2)
  - Necrotising enterocolitis neonatal [None]
  - Condition aggravated [None]
